FAERS Safety Report 6856677-4 (Version None)
Quarter: 2010Q3

REPORT INFORMATION
  Report Type: 
  Country: None (occurrence: None)
  Receive Date: 20100719
  Receipt Date: 20100719
  Transmission Date: 20110219
  Serious: Yes (Hospitalization, Other)
  Sender: FDA-Public Use
  Company Number: US-ROXANE LABORATORIES, INC.-2010-RO-00735RO

PATIENT
  Sex: Male

DRUGS (12)
  1. PREDNISONE [Suspect]
     Indication: PROSTATE CANCER
     Dosage: 10 MG
     Route: 048
     Dates: start: 20090122, end: 20090326
  2. DOCETAXEL [Suspect]
     Indication: PROSTATE CANCER
     Route: 042
     Dates: start: 20090122, end: 20090326
  3. PLACEBO [Suspect]
     Indication: PROSTATE CANCER
     Route: 048
     Dates: start: 20090121, end: 20090806
  4. TYLENOL [Concomitant]
     Dates: start: 20081211
  5. VICODIN [Concomitant]
     Dates: start: 20081211
  6. PROTONIX [Concomitant]
     Dates: start: 20081211
  7. REGLAN [Concomitant]
     Dates: start: 20081211
  8. ZOMETA [Concomitant]
     Dates: start: 20090108, end: 20090806
  9. LUPRON [Concomitant]
     Dates: end: 20090806
  10. CAPTOPRIL [Concomitant]
     Dates: start: 20081211
  11. IRON SULFATETHIAMIN COMPOUND TAB [Concomitant]
     Dates: start: 20081211
  12. INSULIN [Concomitant]
     Dates: start: 20081211

REACTIONS (13)
  - ARTHRALGIA [None]
  - ASTHENIA [None]
  - CACHEXIA [None]
  - CONSTIPATION [None]
  - DECUBITUS ULCER [None]
  - DEHYDRATION [None]
  - DISEASE PROGRESSION [None]
  - DIZZINESS [None]
  - DYSPHAGIA [None]
  - LEUKOPENIA [None]
  - PNEUMONIA [None]
  - RENAL FAILURE ACUTE [None]
  - URETERIC OBSTRUCTION [None]
